FAERS Safety Report 10397310 (Version 1)
Quarter: 2014Q3

REPORT INFORMATION
  Report Type: Spontaneous
  Country: FR (occurrence: FR)
  Receive Date: 20140820
  Receipt Date: 20140820
  Transmission Date: 20150326
  Serious: Yes (Hospitalization)
  Sender: FDA-Public Use
  Company Number: FR-ABBVIE-14P-056-1274193-00

PATIENT
  Age: 35 Year
  Sex: Male

DRUGS (4)
  1. BIOCALYPTOL [Suspect]
     Active Substance: PHOLCODINE
     Indication: BRONCHITIS
     Route: 048
     Dates: start: 20110117, end: 20110119
  2. PARACETAMOL [Suspect]
     Active Substance: ACETAMINOPHEN
     Indication: BRONCHITIS
     Route: 048
     Dates: start: 20110117, end: 20110122
  3. MONONAXY 500 MG [Suspect]
     Active Substance: CLARITHROMYCIN
     Indication: BRONCHITIS
     Route: 048
     Dates: start: 20110119, end: 20110122
  4. AMOXICILLINE/ACIDE CLAVULANIQUE [Suspect]
     Active Substance: AMOXICILLIN\CLAVULANIC ACID
     Indication: BRONCHITIS
     Route: 048
     Dates: start: 20110117, end: 20110119

REACTIONS (2)
  - Condition aggravated [Recovered/Resolved]
  - Toxic skin eruption [Recovered/Resolved]

NARRATIVE: CASE EVENT DATE: 20110122
